FAERS Safety Report 5026797-8 (Version None)
Quarter: 2006Q2

REPORT INFORMATION
  Report Type: 
  Country: None (occurrence: None)
  Receive Date: 20060615
  Receipt Date: 20060607
  Transmission Date: 20061013
  Serious: Yes (Other)
  Sender: FDA-Public Use
  Company Number: US-JNJFOC-20060601825

PATIENT
  Sex: Female
  Weight: 47.63 kg

DRUGS (14)
  1. REMICADE [Suspect]
     Dosage: 34 INFUSIONS ON UNKNOWN DATES
     Route: 042
  2. REMICADE [Suspect]
     Indication: CROHN'S DISEASE
     Route: 042
  3. IMURAN [Concomitant]
     Indication: CROHN'S DISEASE
     Dates: start: 19990901, end: 20050801
  4. CALCITRIOL [Concomitant]
     Indication: DRUG THERAPY
  5. XANAX [Concomitant]
     Indication: FACIAL SPASM
  6. CALCIUM GLUCONATE [Concomitant]
     Indication: DRUG THERAPY
  7. DYAZIDE [Concomitant]
  8. DYAZIDE [Concomitant]
  9. LEVOXYL [Concomitant]
     Indication: THYROID DISORDER
  10. TOPAMAX [Concomitant]
     Indication: MIGRAINE
  11. EFFEXOR [Concomitant]
     Indication: ANXIETY
  12. EFFEXOR [Concomitant]
     Indication: DEPRESSION
  13. PROZAC [Concomitant]
     Indication: ANXIETY
     Dates: start: 19940101, end: 20040101
  14. PROZAC [Concomitant]
     Indication: DEPRESSION
     Dates: start: 19940101, end: 20040101

REACTIONS (4)
  - DIFFUSE LARGE B-CELL LYMPHOMA [None]
  - FACIAL SPASM [None]
  - SPLENOMEGALY [None]
  - THYROID GLAND CANCER [None]
